FAERS Safety Report 5460521-X (Version None)
Quarter: 2007Q3

REPORT INFORMATION
  Report Type: 
  Country: None (occurrence: None)
  Receive Date: 20070919
  Receipt Date: 20070907
  Transmission Date: 20080115
  Serious: Yes (Other)
  Sender: FDA-Public Use
  Company Number: GB-PFIZER INC-2007075607

PATIENT
  Age: 54 Year
  Sex: Female
  Weight: 76.8 kg

DRUGS (2)
  1. VARENICLINE TABLETS [Suspect]
     Indication: SMOKING CESSATION THERAPY
     Route: 048
     Dates: start: 20070517, end: 20070519
  2. ALL OTHER THERAPEUTIC PRODUCTS [Concomitant]

REACTIONS (4)
  - ERYTHEMA OF EYELID [None]
  - EYE PAIN [None]
  - EYELID OEDEMA [None]
  - OCULAR HYPERAEMIA [None]
